FAERS Safety Report 5411424-8 (Version None)
Quarter: 2007Q3

REPORT INFORMATION
  Report Type: 
  Country: None (occurrence: None)
  Receive Date: 20070810
  Receipt Date: 20070731
  Transmission Date: 20080115
  Serious: Yes (Hospitalization)
  Sender: FDA-Public Use
  Company Number: A0667078A

PATIENT
  Age: 76 Year
  Sex: Male

DRUGS (4)
  1. ECOTRIN REGULAR STRENGTH TABLETS [Suspect]
     Indication: DRUG USE FOR UNKNOWN INDICATION
     Route: 048
  2. TERAZOSIN HCL [Concomitant]
  3. LISINOPRIL [Concomitant]
  4. METOPROLOL SUCCINATE [Concomitant]

REACTIONS (6)
  - CAROTID ARTERY OCCLUSION [None]
  - CEREBROVASCULAR ACCIDENT [None]
  - DRUG INEFFECTIVE [None]
  - READING DISORDER [None]
  - THROMBOSIS [None]
  - VISUAL ACUITY REDUCED [None]
